FAERS Safety Report 7763527-0 (Version None)
Quarter: 2011Q3

REPORT INFORMATION
  Report Type: 
  Country: None (occurrence: None)
  Receive Date: 20110920
  Receipt Date: 20110916
  Transmission Date: 20111222
  Serious: Yes (Other)
  Sender: FDA-Public Use
  Company Number: US-ABBOTT-11P-163-0849603-00

PATIENT
  Sex: Female
  Weight: 93.978 kg

DRUGS (6)
  1. HUMIRA [Suspect]
     Dates: start: 20110801
  2. METHOTREXATE [Concomitant]
     Indication: PRODUCT USED FOR UNKNOWN INDICATION
     Dosage: 10-15 MG /WEEK
     Dates: start: 20050101
  3. ZOLOFT [Concomitant]
     Indication: EX-TOBACCO USER
     Dosage: AFTER STOPPING SMOKING CONTINUED ZOLOFT
     Route: 048
  4. HUMIRA [Suspect]
     Indication: PSORIASIS
     Dates: start: 20051001, end: 20110101
  5. LIPITOR [Concomitant]
     Indication: BLOOD CHOLESTEROL
     Dosage: 20 MY TAKES ONE BY MOUTH EVERY DAY
     Route: 048
  6. ASPIRIN [Concomitant]
     Indication: CARDIOVASCULAR EVENT PROPHYLAXIS
     Route: 048

REACTIONS (4)
  - NUCLEAR MAGNETIC RESONANCE IMAGING BREAST ABNORMAL [None]
  - TUMOUR MARKER INCREASED [None]
  - MAMMOGRAM ABNORMAL [None]
  - BREAST CANCER [None]
